FAERS Safety Report 17542236 (Version 1)
Quarter: 2020Q1

REPORT INFORMATION
  Report Type: Spontaneous
  Country: CO (occurrence: CO)
  Receive Date: 20200313
  Receipt Date: 20200313
  Transmission Date: 20200409
  Serious: Yes (Hospitalization)
  Sender: FDA-Public Use
  Company Number: CO-BIOMARINAP-CO-2020-128976

PATIENT
  Age: 15 Year
  Sex: Female
  Weight: 29 kg

DRUGS (1)
  1. VIMIZIM [Suspect]
     Active Substance: ELOSULFASE ALFA
     Indication: MUCOPOLYSACCHARIDOSIS IV
     Dosage: 55 MILLIGRAM, QW
     Route: 042
     Dates: start: 201412

REACTIONS (11)
  - Pallor [Unknown]
  - Flatulence [Unknown]
  - Arthralgia [Unknown]
  - Pain [Unknown]
  - Abdominal pain [Unknown]
  - Nausea [Unknown]
  - Dizziness [Unknown]
  - Vomiting [Unknown]
  - Dysuria [Unknown]
  - Tachypnoea [Unknown]
  - Feeling cold [Unknown]

NARRATIVE: CASE EVENT DATE: 20200305
